FAERS Safety Report 11297136 (Version 1)
Quarter: 2015Q3

REPORT INFORMATION
  Report Type: Spontaneous
  Country: US (occurrence: US)
  Receive Date: 20150722
  Receipt Date: 20150722
  Transmission Date: 20151125
  Serious: Yes (Other)
  Sender: FDA-Public Use
  Company Number: US-ELI_LILLY_AND_COMPANY-US201102005016

PATIENT
  Sex: Female

DRUGS (3)
  1. ASPIRIN. [Concomitant]
     Active Substance: ASPIRIN
  2. EFFIENT [Suspect]
     Active Substance: PRASUGREL HYDROCHLORIDE
     Indication: STENT PLACEMENT
     Dosage: 60 MG, LOADING DOSE
     Dates: start: 20110216, end: 20110216
  3. INTEGRILIN [Concomitant]
     Active Substance: EPTIFIBATIDE

REACTIONS (1)
  - Pulmonary haemorrhage [Unknown]

NARRATIVE: CASE EVENT DATE: 20110216
